FAERS Safety Report 10206725 (Version 1)
Quarter: 2014Q2

REPORT INFORMATION
  Report Type: Spontaneous
  Country: US (occurrence: None)
  Receive Date: 20140527
  Receipt Date: 20140527
  Transmission Date: 20141212
  Serious: Yes (Other)
  Sender: FDA-Public Use
  Company Number: None

PATIENT
  Age: 84 Year
  Sex: Male
  Weight: 74.57 kg

DRUGS (15)
  1. VEGF TRAP [Suspect]
     Indication: MACULAR DEGENERATION
     Dosage: 2MG MONTHLY INTRAVITREAL
     Dates: start: 20120921
  2. LABETALOL [Concomitant]
  3. NORVASC [Concomitant]
  4. DIGOXIN [Concomitant]
  5. SYNTHROID [Concomitant]
  6. PERCOCET [Concomitant]
  7. LASIX [Concomitant]
  8. LYTEIN [Concomitant]
  9. VALIUM [Concomitant]
  10. CYMBALTA [Concomitant]
  11. MULTIVITAMIN [Concomitant]
  12. CALCIUM [Concomitant]
  13. FISH OIL [Concomitant]
  14. CELEXA [Concomitant]
  15. OXYGEN [Concomitant]

REACTIONS (1)
  - Cerebrovascular accident [None]
